FAERS Safety Report 6471620-8 (Version None)
Quarter: 2009Q4

REPORT INFORMATION
  Report Type: 
  Country: None (occurrence: None)
  Receive Date: 20091203
  Receipt Date: 20080530
  Transmission Date: 20100525
  Serious: Yes (Hospitalization)
  Sender: FDA-Public Use
  Company Number: AT-ELI_LILLY_AND_COMPANY-AT200804000123

PATIENT
  Sex: Male

DRUGS (6)
  1. ZYPREXA [Suspect]
     Indication: SCHIZOPHRENIA
     Dosage: 15 MG, EACH EVENING
     Route: 048
     Dates: end: 20080321
  2. DEPAKINE CHRONOSPHERE [Concomitant]
     Indication: AGGRESSION
     Dosage: 1800 MG, DAILY (1/D)
     Route: 048
     Dates: start: 20060101
  3. DEPAKINE CHRONOSPHERE [Concomitant]
     Dosage: 750 MG, EACH MORNING
  4. DEPAKINE CHRONOSPHERE [Concomitant]
     Dosage: 1000 MG, EACH EVENING
  5. GLUCOPHAGE [Concomitant]
     Dosage: 850 MG, EACH EVENING
  6. PANTOLOC                           /01263201/ [Concomitant]
     Dosage: 40 MG, EACH MORNING

REACTIONS (10)
  - ANGIOPATHY [None]
  - BLOOD CHLORIDE DECREASED [None]
  - BLOOD CREATINE PHOSPHOKINASE MB INCREASED [None]
  - BLOOD UREA DECREASED [None]
  - C-REACTIVE PROTEIN INCREASED [None]
  - DIABETES MELLITUS [None]
  - HOSPITALISATION [None]
  - HYPONATRAEMIA [None]
  - SPEECH DISORDER [None]
  - VASCULAR ENCEPHALOPATHY [None]
